FAERS Safety Report 8517073 (Version 6)
Quarter: 2012Q4

REPORT INFORMATION
  Report Type: 
  Country: US (occurrence: US)
  Receive Date: 20120417
  Receipt Date: 20121012
  Transmission Date: 20130627
  Serious: Yes (Other)
  Sender: FDA-Public Use
  Company Number: US-TEVA-333421USA

PATIENT
  Sex: Female

DRUGS (2)
  1. CLARAVIS [Suspect]
     Dosage: 60 Milligram Daily;
     Route: 048
     Dates: start: 20110216, end: 201107
  2. ETHINYLESTRADIOL W/NORETHINDRONE [Concomitant]
     Indication: CONTRACEPTION

REACTIONS (2)
  - Abortion spontaneous [Unknown]
  - Pregnancy [Unknown]
